FAERS Safety Report 6688950-7 (Version None)
Quarter: 2010Q2

REPORT INFORMATION
  Report Type: 
  Country: None (occurrence: None)
  Receive Date: 20100409
  Receipt Date: 20100401
  Transmission Date: 20101027
  Serious: Yes (Other)
  Sender: FDA-Public Use
  Company Number: 2010SP011782

PATIENT
  Age: 29 Year
  Sex: Male

DRUGS (4)
  1. MIRTAZAPINE [Suspect]
     Indication: DRUG USE FOR UNKNOWN INDICATION
     Dosage: 15 MG;QD;PO
     Route: 048
     Dates: start: 20091017, end: 20100107
  2. HALCION [Concomitant]
  3. ZOLOFT [Concomitant]
  4. SOLANAX [Concomitant]

REACTIONS (1)
  - EPILEPSY [None]
